FAERS Safety Report 6327799-1 (Version None)
Quarter: 2009Q3

REPORT INFORMATION
  Report Type: 
  Country: None (occurrence: None)
  Receive Date: 20090824
  Receipt Date: 20090818
  Transmission Date: 20100115
  Serious: Yes (Other)
  Sender: FDA-Public Use
  Company Number: CHPA2009US17155

PATIENT
  Age: 58 Year
  Sex: Male
  Weight: 90.7 kg

DRUGS (3)
  1. VOLTAREN [Suspect]
     Indication: OSTEOARTHRITIS
     Dosage: APPLIED ONCE, TOPICAL, APPLIED THREE TIMES, TOPICAL
     Route: 061
     Dates: start: 20090811, end: 20090811
  2. VOLTAREN [Suspect]
     Indication: OSTEOARTHRITIS
     Dosage: APPLIED ONCE, TOPICAL, APPLIED THREE TIMES, TOPICAL
     Route: 061
     Dates: start: 20090812, end: 20090812
  3. CARDIZEM [Concomitant]

REACTIONS (5)
  - CONDITION AGGRAVATED [None]
  - DIZZINESS [None]
  - FALL [None]
  - HYPERTENSION [None]
  - VERTIGO [None]
